FAERS Safety Report 8167697-4 (Version None)
Quarter: 2012Q1

REPORT INFORMATION
  Report Type: 
  Country: None (occurrence: None)
  Receive Date: 20120227
  Receipt Date: 20120220
  Transmission Date: 20120608
  Serious: Yes (Death)
  Sender: FDA-Public Use
  Company Number: GB-ROCHE-1032038

PATIENT
  Sex: Female

DRUGS (6)
  1. LUCENTIS [Suspect]
     Indication: AGE-RELATED MACULAR DEGENERATION
     Route: 050
     Dates: start: 20111115
  2. AMIODARONE HCL [Concomitant]
  3. LETROZOLE [Concomitant]
  4. PERINDOPRIL [Concomitant]
  5. HYDROXOCOBALAMIN [Concomitant]
     Dosage: 1/1 MG/ML
  6. ASPIRIN [Concomitant]

REACTIONS (1)
  - DEATH [None]
